FAERS Safety Report 11093347 (Version 1)
Quarter: 2015Q2

REPORT INFORMATION
  Report Type: Spontaneous
  Country: FR (occurrence: FR)
  Receive Date: 20150506
  Receipt Date: 20150506
  Transmission Date: 20150821
  Serious: Yes (Death, Hospitalization)
  Sender: FDA-Public Use
  Company Number: FR-TEVA-560523ISR

PATIENT
  Age: 76 Year
  Sex: Female

DRUGS (3)
  1. CLOBETASOL [Suspect]
     Active Substance: CLOBETASOL
     Dosage: 10 GRAM DAILY; TAPERED AT TIMES TO 10 G/DAY
     Route: 061
  2. CLOBETASOL [Suspect]
     Active Substance: CLOBETASOL
     Indication: PEMPHIGOID
     Dosage: 30 G/DAY, TAPERED AT TIMES TO 10 G/DAY
     Route: 061
  3. MYCOPHENOLATE-MOFETIL [Suspect]
     Active Substance: MYCOPHENOLATE MOFETIL
     Indication: PEMPHIGOID
     Dosage: 2 GRAM DAILY;
     Route: 065

REACTIONS (5)
  - Staphylococcus test positive [None]
  - General physical health deterioration [None]
  - Streptococcus test positive [None]
  - Necrotising fasciitis [Fatal]
  - Septic shock [Fatal]
